FAERS Safety Report 9369139 (Version 1)
Quarter: 2013Q2

REPORT INFORMATION
  Report Type: Report from Study
  Country: MX (occurrence: MX)
  Receive Date: 20130626
  Receipt Date: 20130626
  Transmission Date: 20140414
  Serious: Yes (Hospitalization, Other)
  Sender: FDA-Public Use
  Company Number: PHHY2013MX065137

PATIENT
  Age: 91 Year
  Sex: Female

DRUGS (4)
  1. GALVUS MET [Suspect]
     Indication: TYPE 2 DIABETES MELLITUS
     Dosage: 1 DF, (500 MG METF/ 50 MG VILDA) DAILY
     Route: 048
     Dates: end: 201301
  2. GALVUS MET [Suspect]
     Dosage: 2 DF, (850 MG METF/ 50 MG VILDA) DAILY
     Route: 048
     Dates: start: 201301
  3. CO-DIOVAN [Suspect]
     Indication: HYPERTENSION
     Dosage: 1 DF, (80 MG VALS/ 12,5 MG HYDRO) DAILY
     Route: 048
  4. ENSURE [Concomitant]
     Indication: NUTRITIONAL SUPPLEMENTATION
     Dosage: 1 DF, Q12H
     Dates: start: 2006

REACTIONS (5)
  - Cerebral ischaemia [Recovering/Resolving]
  - Renal failure acute [Unknown]
  - Bone disorder [Unknown]
  - Fall [Recovered/Resolved]
  - Injury [Recovered/Resolved]
